FAERS Safety Report 19481482 (Version 2)
Quarter: 2022Q1

REPORT INFORMATION
  Report Type: Spontaneous
  Country: US (occurrence: None)
  Receive Date: 20210701
  Receipt Date: 20220111
  Transmission Date: 20220423
  Serious: Yes (Other)
  Sender: FDA-Public Use
  Company Number: 2021A557717

PATIENT
  Age: 39 Year
  Sex: Male
  Weight: 127 kg

DRUGS (46)
  1. NEXIUM [Suspect]
     Active Substance: ESOMEPRAZOLE MAGNESIUM
     Indication: Gastrooesophageal reflux disease
     Route: 048
     Dates: start: 2005, end: 2013
  2. NEXIUM [Suspect]
     Active Substance: ESOMEPRAZOLE MAGNESIUM
     Indication: Gastrooesophageal reflux disease
     Route: 048
     Dates: start: 2005, end: 2013
  3. NEXIUM [Suspect]
     Active Substance: ESOMEPRAZOLE MAGNESIUM
     Indication: Gastrooesophageal reflux disease
     Route: 048
     Dates: start: 2005, end: 2017
  4. NEXIUM [Suspect]
     Active Substance: ESOMEPRAZOLE MAGNESIUM
     Indication: Gastrooesophageal reflux disease
     Route: 048
     Dates: start: 2005, end: 2017
  5. NEXIUM [Suspect]
     Active Substance: ESOMEPRAZOLE MAGNESIUM
     Indication: Gastrooesophageal reflux disease
     Route: 048
     Dates: start: 2005, end: 2017
  6. NEXIUM [Suspect]
     Active Substance: ESOMEPRAZOLE MAGNESIUM
     Indication: Gastrooesophageal reflux disease
     Route: 048
     Dates: start: 2005, end: 2017
  7. NEXIUM [Suspect]
     Active Substance: ESOMEPRAZOLE MAGNESIUM
     Indication: Gastrooesophageal reflux disease
     Dosage: GENERIC
     Route: 065
     Dates: start: 2016
  8. NEXIUM [Suspect]
     Active Substance: ESOMEPRAZOLE MAGNESIUM
     Indication: Gastrooesophageal reflux disease
     Dosage: GENERIC
     Route: 065
     Dates: start: 2016
  9. LIPITOR [Concomitant]
     Active Substance: ATORVASTATIN CALCIUM
     Indication: Hyperlipidaemia
  10. OLOPATADINE [Concomitant]
     Active Substance: OLOPATADINE
  11. SYNTHROID [Concomitant]
     Active Substance: LEVOTHYROXINE SODIUM
  12. POLYVINYL [Concomitant]
  13. ACETAMINOPHEN [Concomitant]
     Active Substance: ACETAMINOPHEN
  14. DICLOFENAC [Concomitant]
     Active Substance: DICLOFENAC
  15. PROAIR HFA [Concomitant]
     Active Substance: ALBUTEROL SULFATE
  16. OSELTAMIVIR [Concomitant]
     Active Substance: OSELTAMIVIR
  17. LIDOCAINE [Concomitant]
     Active Substance: LIDOCAINE
  18. BENZONATATE [Concomitant]
     Active Substance: BENZONATATE
  19. MELATONIN [Concomitant]
     Active Substance: MELATONIN
  20. VALACYCLOVIR [Concomitant]
     Active Substance: VALACYCLOVIR HYDROCHLORIDE
  21. BISACODYL [Concomitant]
     Active Substance: BISACODYL
  22. AMOX/ CLAV [Concomitant]
  23. FLUTICASONE [Concomitant]
     Active Substance: FLUTICASONE
  24. PSEUDOEPHEDRINE [Concomitant]
     Active Substance: PSEUDOEPHEDRINE
  25. GOLYTELY [Concomitant]
     Active Substance: POLYETHYLENE GLYCOL 3350\POTASSIUM CHLORIDE\SODIUM BICARBONATE\SODIUM CHLORIDE\SODIUM SULFATE
  26. SILDENAFIL [Concomitant]
     Active Substance: SILDENAFIL
  27. METHOCARBAAMOL [Concomitant]
  28. POLYETHYLENE GLYCOL [Concomitant]
     Active Substance: POLYETHYLENE GLYCOL
  29. CYCLOBENZAPRINE [Concomitant]
     Active Substance: CYCLOBENZAPRINE
  30. ARMOUR THYROID [Concomitant]
     Active Substance: THYROID, PORCINE
  31. LEVITRA [Concomitant]
     Active Substance: VARDENAFIL HYDROCHLORIDE
  32. DOCUSATE SODIUM [Concomitant]
     Active Substance: DOCUSATE SODIUM
  33. SULFAMETHOXAZOLE\TRIMETHOPRIM [Concomitant]
     Active Substance: SULFAMETHOXAZOLE\TRIMETHOPRIM
  34. MONTELUKAST [Concomitant]
     Active Substance: MONTELUKAST SODIUM
  35. HYDROXYZINE HYDROCHLORIDE [Concomitant]
     Active Substance: HYDROXYZINE HYDROCHLORIDE
  36. OXYMETAZOLINE [Concomitant]
     Active Substance: OXYMETAZOLINE
  37. ACYCLOVIR [Concomitant]
     Active Substance: ACYCLOVIR
  38. ZZENTEX [Concomitant]
  39. TRIAMCINOLONE [Concomitant]
     Active Substance: TRIAMCINOLONE
  40. DIPHENHYDRAMINE [Concomitant]
     Active Substance: DIPHENHYDRAMINE
  41. OXYCODONE [Concomitant]
     Active Substance: OXYCODONE
  42. CELEBREX [Concomitant]
     Active Substance: CELECOXIB
  43. FEXOFENADINE HYDROCHLORIDE [Concomitant]
     Active Substance: FEXOFENADINE HYDROCHLORIDE
  44. SALMETEROL XINAFOATE [Concomitant]
     Active Substance: SALMETEROL XINAFOATE
  45. CITALOPRAM HYDROBROMIDE [Concomitant]
     Active Substance: CITALOPRAM HYDROBROMIDE
  46. MELOXICAM [Concomitant]
     Active Substance: MELOXICAM

REACTIONS (1)
  - Chronic kidney disease [Not Recovered/Not Resolved]

NARRATIVE: CASE EVENT DATE: 20140101
